FAERS Safety Report 4355317-6 (Version None)
Quarter: 2004Q2

REPORT INFORMATION
  Report Type: 
  Country: None (occurrence: None)
  Receive Date: 20040505
  Receipt Date: 20040427
  Transmission Date: 20050107
  Serious: No
  Sender: FDA-Public Use
  Company Number: 2004AP02161

PATIENT
  Age: 67 Year
  Sex: Female

DRUGS (16)
  1. IRESSA [Suspect]
     Indication: LUNG ADENOCARCINOMA
     Dosage: 250 MG DAILY; PO
     Route: 048
     Dates: start: 20021115, end: 20021206
  2. IRESSA [Suspect]
     Indication: LUNG ADENOCARCINOMA
     Dosage: 250 MG DAILY; PO
     Route: 048
     Dates: start: 20021218, end: 20021225
  3. IRESSA [Suspect]
     Indication: LUNG ADENOCARCINOMA
     Dosage: 250 MG DAILY; PO
     Route: 048
     Dates: start: 20030110, end: 20030203
  4. CALCIUM LACTATE [Concomitant]
  5. MYSLEE [Concomitant]
  6. NO MATCH [Concomitant]
  7. LAXOBERON [Concomitant]
  8. NAIXAN [Concomitant]
  9. SELBEX [Concomitant]
  10. PARIET [Concomitant]
  11. ALDACTONE [Concomitant]
  12. PREDONINE [Concomitant]
  13. PRAMIEL [Concomitant]
  14. PACLITAXEL [Concomitant]
  15. CARBOPLATIN [Concomitant]
  16. RADIOTHERAPY [Concomitant]

REACTIONS (24)
  - ALANINE AMINOTRANSFERASE INCREASED [None]
  - ANAEMIA [None]
  - ASTHENIA [None]
  - BLOOD ALKALINE PHOSPHATASE INCREASED [None]
  - BLOOD LACTATE DEHYDROGENASE DECREASED [None]
  - BLOOD LACTATE DEHYDROGENASE INCREASED [None]
  - CARDIOMEGALY [None]
  - COUGH [None]
  - EPISTAXIS [None]
  - FACE OEDEMA [None]
  - HERPES VIRUS INFECTION [None]
  - INSOMNIA [None]
  - INTERSTITIAL LUNG DISEASE [None]
  - LUNG ADENOCARCINOMA [None]
  - MALIGNANT NEOPLASM PROGRESSION [None]
  - METASTASES TO SPINE [None]
  - PLATELET COUNT DECREASED [None]
  - PLEURAL EFFUSION [None]
  - PO2 DECREASED [None]
  - PULMONARY MYCOSIS [None]
  - SENSORY DISTURBANCE [None]
  - SPINAL CORD COMPRESSION [None]
  - STOMATITIS [None]
  - WHEEZING [None]
